FAERS Safety Report 7245652-6 (Version None)
Quarter: 2011Q1

REPORT INFORMATION
  Report Type: 
  Country: None (occurrence: None)
  Receive Date: 20110126
  Receipt Date: 20110117
  Transmission Date: 20110831
  Serious: Yes (Death, Hospitalization)
  Sender: FDA-Public Use
  Company Number: JP-MPIJNJ-2008_00483

PATIENT

DRUGS (24)
  1. DEXAMETHASONE [Concomitant]
     Dosage: 40 MG, UNK
     Route: 042
     Dates: start: 20070919, end: 20080130
  2. ALOSITOL [Concomitant]
     Dosage: 1 DF, UNK
     Route: 048
     Dates: end: 20071010
  3. ADALAT [Concomitant]
     Dosage: 2.00 DF, UNK
     Route: 048
  4. LEPETAN [Concomitant]
     Dosage: 0.5 MG, UNK
     Route: 042
     Dates: start: 20070919
  5. PENTAZOCINE LACTATE [Concomitant]
     Dosage: 2.00 DF, UNK
     Route: 048
  6. VELCADE [Suspect]
     Dosage: 1.7 MG, UNK
     Route: 042
     Dates: start: 20070808, end: 20070929
  7. LOXOPROFEN SODIUM [Concomitant]
     Dosage: 3.00 DF, UNK
     Route: 048
  8. ANPLAG [Concomitant]
     Indication: ANGINA PECTORIS
     Dosage: 1.00 DF, UNK
  9. TEGRETOL [Concomitant]
     Dosage: 1 DF, UNK
     Route: 048
     Dates: start: 20070815, end: 20070908
  10. PENTAZOCINE LACTATE [Concomitant]
     Dosage: 3.00 DF, UNK
     Route: 048
  11. TAKEPRON [Concomitant]
     Dosage: 1.00 DF, UNK
     Route: 048
  12. VELCADE [Suspect]
     Dosage: 1.2 UNK, UNK
     Route: 042
     Dates: start: 20071023, end: 20080130
  13. VELCADE [Suspect]
     Indication: MULTIPLE MYELOMA
     Dosage: 1.8 MG, UNK
     Route: 042
     Dates: start: 20070702, end: 20070712
  14. ASPIRIN [Concomitant]
     Indication: ANGINA PECTORIS
     Dosage: 1.00 DF, UNK
     Route: 048
  15. ANPLAG [Concomitant]
     Dosage: 3.00 DF, UNK
     Route: 048
  16. SUNRYTHM [Concomitant]
     Indication: ANGINA PECTORIS
     Dosage: 3.00 DF, UNK
     Route: 048
  17. ADALAT [Concomitant]
     Indication: ANGINA PECTORIS
     Dosage: 1.00 DF, UNK
     Route: 048
  18. MAGNESIUM OXIDE [Concomitant]
     Indication: CONSTIPATION
     Dosage: 3.00 G, UNK
     Route: 048
     Dates: start: 20070622
  19. DEXAMETHASONE [Concomitant]
     Indication: MULTIPLE MYELOMA
     Dosage: 20 MG, UNK
     Route: 048
     Dates: start: 20070702, end: 20070909
  20. ORGADRONE [Concomitant]
     Dosage: 40.00 MG, UNK
     Dates: start: 20070919
  21. BLOPRESS [Concomitant]
     Indication: ANGINA PECTORIS
     Dosage: 1.00 DF, UNK
     Route: 048
  22. ROHYPNOL [Concomitant]
     Indication: INSOMNIA
     Dosage: 1 DF, UNK
     Route: 048
     Dates: start: 20070802, end: 20070908
  23. METHYCOBAL [Concomitant]
     Indication: NEUROPATHY PERIPHERAL
     Dosage: 3 DF, UNK
     Route: 048
     Dates: start: 20071010
  24. ADOFEED [Concomitant]
     Route: 062

REACTIONS (4)
  - PYREXIA [None]
  - INFECTION [None]
  - MALAISE [None]
  - DISEASE PROGRESSION [None]
